FAERS Safety Report 10204191 (Version 1)
Quarter: 2014Q2

REPORT INFORMATION
  Report Type: Spontaneous
  Country: AU (occurrence: AU)
  Receive Date: 20140529
  Receipt Date: 20140529
  Transmission Date: 20141212
  Serious: Yes (Other)
  Sender: FDA-Public Use
  Company Number: AU-ACTAVIS PTY LTD-2014-11370

PATIENT
  Age: 67 Year
  Sex: Female

DRUGS (10)
  1. DEXAMETHASONE (UNKNOWN) [Suspect]
     Indication: PLASMA CELL MYELOMA
     Dosage: 20 MG, UNK, ON D1, 2, 4, 5, 8, 9, 11 AND 12 FOR FOUR 21-DAY TREATMENT CYCLES
     Route: 065
  2. DOXORUBICIN (UNKNOWN) [Suspect]
     Indication: PLASMA CELL MYELOMA
     Dosage: 20 MG/M2, UNK,  FOR FOUR 21-DAY TREATMENT CYCLES
     Route: 065
  3. CYCLOPHOSPHAMIDE (UNKNOWN) [Suspect]
     Indication: PLASMA CELL MYELOMA
     Dosage: 3 G/M^2
     Route: 065
  4. CYCLOPHOSPHAMIDE (UNKNOWN) [Suspect]
     Dosage: UNK
     Route: 065
  5. PREDNISOLONE (UNKNOWN) [Suspect]
     Indication: PLASMA CELL MYELOMA
     Dosage: UNKNOWN
     Route: 065
  6. BORTEZOMIB [Suspect]
     Indication: PLASMA CELL MYELOMA
     Dosage: 1.3 MG/M2, UNK,  FOR FOUR 21-DAY TREATMENT CYCLES
     Route: 065
  7. MELPHALAN [Suspect]
     Indication: PRODUCT USED FOR UNKNOWN INDICATION
     Dosage: 200 MG/M2, UNK
     Route: 065
  8. MELPHALAN [Suspect]
     Dosage: 140 MG/M2, UNK
     Route: 065
  9. THALIDOMIDE [Suspect]
     Indication: PRODUCT USED FOR UNKNOWN INDICATION
     Dosage: UNKNOWN
     Route: 065
  10. GRANULOCYTE COLONY-STIMULATING FACTOR NOS [Concomitant]
     Indication: HAEMATOPOIETIC STEM CELL MOBILISATION
     Dosage: UNK
     Route: 065

REACTIONS (3)
  - Cytomegalovirus chorioretinitis [Recovering/Resolving]
  - Neuropathy peripheral [Unknown]
  - Cytomegalovirus infection [Recovering/Resolving]
